FAERS Safety Report 24627611 (Version 1)
Quarter: 2024Q4

REPORT INFORMATION
  Report Type: Report from Study
  Country: GB (occurrence: GB)
  Receive Date: 20241116
  Receipt Date: 20241116
  Transmission Date: 20250114
  Serious: Yes (Other)
  Sender: AUROBINDO
  Company Number: GB-AUROBINDO-AUR-APL-2024-055028

PATIENT

DRUGS (3)
  1. CARBOPLATIN [Suspect]
     Active Substance: CARBOPLATIN
     Indication: Retinoblastoma
     Dosage: 280 MG/M2, 2 CYCLICAL  (CUMULATIVE DOSE OF 13.2 MG/KG WHICH FOR THIS PATIENT WAS EQUIVALENT TO 225 M
     Route: 065
  2. ETOPOSIDE [Concomitant]
     Active Substance: ETOPOSIDE
     Indication: Retinoblastoma
     Dosage: UNK, CYCLICAL
     Route: 065
  3. VINCRISTINE [Concomitant]
     Active Substance: VINCRISTINE
     Indication: Retinoblastoma
     Dosage: UNK, CYCLICAL
     Route: 065

REACTIONS (1)
  - Febrile neutropenia [Unknown]
